FAERS Safety Report 15011614 (Version 1)
Quarter: 2018Q2

REPORT INFORMATION
  Report Type: Spontaneous
  Country: CN (occurrence: CN)
  Receive Date: 20180614
  Receipt Date: 20180614
  Transmission Date: 20180711
  Serious: Yes (Hospitalization)
  Sender: FDA-Public Use
  Company Number: CN-GLAXOSMITHKLINE-CN2018GSK103410

PATIENT
  Age: 84 Year
  Sex: Female

DRUGS (4)
  1. HEPTODIN [Suspect]
     Active Substance: LAMIVUDINE
     Indication: CHRONIC HEPATITIS B
     Dosage: UNK
     Route: 048
  2. VIREAD [Suspect]
     Active Substance: TENOFOVIR DISOPROXIL FUMARATE
     Indication: CHRONIC HEPATITIS B
     Dosage: UNK
     Route: 048
  3. ENTECAVIR. [Suspect]
     Active Substance: ENTECAVIR
     Indication: CHRONIC HEPATITIS B
     Dosage: UNK
     Route: 048
  4. HEPSERA [Suspect]
     Active Substance: ADEFOVIR DIPIVOXIL
     Indication: CHRONIC HEPATITIS B
     Dosage: UNK
     Route: 048

REACTIONS (4)
  - Blood creatinine increased [Unknown]
  - Hypophosphataemia [Recovered/Resolved]
  - Drug resistance [Unknown]
  - Bone pain [Not Recovered/Not Resolved]
